FAERS Safety Report 6248465-7 (Version None)
Quarter: 2009Q2

REPORT INFORMATION
  Report Type: 
  Country: None (occurrence: None)
  Receive Date: 20090629
  Receipt Date: 20090618
  Transmission Date: 20091009
  Serious: Yes (Hospitalization)
  Sender: FDA-Public Use
  Company Number: US-ROCHE-637985

PATIENT
  Sex: Female

DRUGS (6)
  1. PEG-INTERFERON A-2A (RO 25-8310) [Suspect]
     Indication: HEPATITIS C
     Dosage: FORM: PRE-FILLED SYRINGE (PFS)
     Route: 058
     Dates: start: 20090507
  2. RIBAVIRIN [Suspect]
     Indication: HEPATITIS C
     Route: 048
     Dates: start: 20090507
  3. UNKNOWN MEDICATION FOR PAIN [Suspect]
     Indication: PAIN
     Route: 048
  4. UNKNOWN MEDICATION FOR PAIN [Suspect]
     Route: 048
  5. UNKNOWN MEDICATION FOR PAIN [Suspect]
     Route: 048
  6. PAXIL [Concomitant]
     Indication: DEPRESSION

REACTIONS (4)
  - DELIRIUM [None]
  - HALLUCINATION [None]
  - LOSS OF CONSCIOUSNESS [None]
  - OVERDOSE [None]
